FAERS Safety Report 16680032 (Version 4)
Quarter: 2023Q2

REPORT INFORMATION
  Report Type: Report from Study
  Country: CA (occurrence: CA)
  Receive Date: 20190807
  Receipt Date: 20230612
  Transmission Date: 20230721
  Serious: Yes (Other)
  Sender: FDA-Public Use
  Company Number: PHHO2019CA007956

PATIENT
  Age: 75 Year
  Sex: Female
  Weight: 59.6 kg

DRUGS (1)
  1. KYMRIAH [Suspect]
     Active Substance: TISAGENLECLEUCEL
     Indication: Diffuse large B-cell lymphoma
     Dosage: 4.135 X 10E8 CELLS
     Route: 042
     Dates: start: 20151223, end: 20151223

REACTIONS (2)
  - Invasive ductal breast carcinoma [Recovered/Resolved]
  - Second primary malignancy [Not Recovered/Not Resolved]

NARRATIVE: CASE EVENT DATE: 20190625
